FAERS Safety Report 9266929 (Version 2)
Quarter: 2013Q2

REPORT INFORMATION
  Report Type: Spontaneous
  Country: US (occurrence: US)
  Receive Date: 20130502
  Receipt Date: 20130508
  Transmission Date: 20140414
  Serious: Yes (Hospitalization, Other)
  Sender: FDA-Public Use
  Company Number: US-CELGENEUS-163-POMAL-13044245

PATIENT
  Age: 77 Year
  Sex: Male

DRUGS (4)
  1. POMALYST [Suspect]
     Indication: PLASMA CELL MYELOMA
     Dosage: 4 MILLIGRAM
     Route: 048
     Dates: start: 201303
  2. METHADONE [Suspect]
     Indication: BACK PAIN
     Route: 065
     Dates: start: 2013
  3. METHADONE [Suspect]
     Dosage: 20 MILLIGRAM
     Route: 065
     Dates: start: 2013
  4. LORTAB [Concomitant]
     Indication: BACK PAIN
     Route: 065
     Dates: start: 2013

REACTIONS (4)
  - Arteriovenous malformation [Unknown]
  - Haemorrhage [Unknown]
  - Confusional state [Not Recovered/Not Resolved]
  - Pruritus [Not Recovered/Not Resolved]
